FAERS Safety Report 6634841-7 (Version None)
Quarter: 2010Q1

REPORT INFORMATION
  Report Type: 
  Country: None (occurrence: None)
  Receive Date: 20100315
  Receipt Date: 20100304
  Transmission Date: 20100710
  Serious: Yes (Hospitalization, Disabling, Other)
  Sender: FDA-Public Use
  Company Number: US-MERCK-0907USA04406

PATIENT
  Age: 94 Year
  Sex: Female

DRUGS (4)
  1. FOSAMAX [Suspect]
     Indication: OSTEOPOROSIS
     Route: 048
     Dates: start: 20020423, end: 20081213
  2. CARDIZEM LA [Concomitant]
     Indication: HYPERTENSION
     Route: 065
  3. WELLBUTRIN [Concomitant]
     Indication: DEPRESSION
     Route: 065
  4. CALCIUM (UNSPECIFIED) [Concomitant]
     Route: 065

REACTIONS (41)
  - ANAEMIA [None]
  - ANXIETY [None]
  - AORTIC STENOSIS [None]
  - BIFASCICULAR BLOCK [None]
  - BLADDER MASS [None]
  - BLADDER PROLAPSE [None]
  - BRONCHITIS [None]
  - BUNDLE BRANCH BLOCK RIGHT [None]
  - CARDIAC FAILURE CONGESTIVE [None]
  - CARDIAC MURMUR [None]
  - CELLULITIS [None]
  - DECUBITUS ULCER [None]
  - DEPRESSION [None]
  - DIARRHOEA [None]
  - DYSPEPSIA [None]
  - ECONOMIC PROBLEM [None]
  - ESCHAR [None]
  - ESCHERICHIA INFECTION [None]
  - FALL [None]
  - FEMUR FRACTURE [None]
  - HAEMATURIA [None]
  - HYPOACUSIS [None]
  - HYPONATRAEMIA [None]
  - IMPAIRED HEALING [None]
  - LEFT ATRIAL DILATATION [None]
  - LOCALISED INFECTION [None]
  - MITRAL VALVE INCOMPETENCE [None]
  - MULTIPLE INJURIES [None]
  - MYOCARDIAL INFARCTION [None]
  - OSTEOARTHRITIS [None]
  - OSTEOMYELITIS CHRONIC [None]
  - OSTEONECROSIS [None]
  - PAIN [None]
  - PERIPROSTHETIC FRACTURE [None]
  - PNEUMONIA [None]
  - PULMONARY HYPERTENSION [None]
  - PULSE ABNORMAL [None]
  - QRS AXIS ABNORMAL [None]
  - SPEECH DISORDER [None]
  - SPINAL COMPRESSION FRACTURE [None]
  - URINARY TRACT INFECTION [None]
